FAERS Safety Report 4650158-4 (Version None)
Quarter: 2005Q2

REPORT INFORMATION
  Report Type: 
  Country: None (occurrence: None)
  Receive Date: 20050428
  Receipt Date: 20050416
  Transmission Date: 20051028
  Serious: Yes (Hospitalization)
  Sender: FDA-Public Use
  Company Number: 2005061759

PATIENT
  Age: 65 Year
  Sex: Female

DRUGS (2)
  1. SOLU-MEDROL [Suspect]
     Indication: LUNG INFECTION
     Dosage: 500 MG, UNKNOWN
  2. MAGNEX (SULBACTAM, CEFOPERAZONE) [Suspect]
     Indication: LUNG INFECTION
     Dosage: 1 GRAM, UNKNIOWN)

REACTIONS (1)
  - PULMONARY OEDEMA [None]
